FAERS Safety Report 7055244 (Version 31)
Quarter: 2015Q4

REPORT INFORMATION
  Report Type: Report from Study
  Country: CA (occurrence: CA)
  Receive Date: 20090720
  Receipt Date: 20151026
  Transmission Date: 20160305
  Serious: Yes (Other)
  Sender: FDA-Public Use
  Company Number: PHHY2009CA29285

PATIENT
  Age: 43 Year
  Sex: Female

DRUGS (6)
  1. SANDOSTATIN LAR DEPOT [Suspect]
     Active Substance: OCTREOTIDE ACETATE
     Dosage: 40 MG, EVERY 4 WEEKS
     Route: 030
  2. SANDOSTATIN LAR DEPOT [Suspect]
     Active Substance: OCTREOTIDE ACETATE
     Dosage: 60 MG, EVERY 4 WEEKS
     Route: 030
  3. CABERGOLINE. [Concomitant]
     Active Substance: CABERGOLINE
     Indication: PRODUCT USED FOR UNKNOWN INDICATION
     Route: 065
  4. SANDOSTATIN LAR DEPOT [Suspect]
     Active Substance: OCTREOTIDE ACETATE
     Indication: ACROMEGALY
     Dosage: 30 MG, EVERY 4 WEEKS
     Route: 030
     Dates: start: 20050913
  5. SANDOSTATIN LAR DEPOT [Suspect]
     Active Substance: OCTREOTIDE ACETATE
     Dosage: 10 MG, QMO (EVERY 4 WEEKS)
     Route: 030
  6. SANDOSTATIN LAR DEPOT [Suspect]
     Active Substance: OCTREOTIDE ACETATE
     Dosage: 20 MG, EVERY 4 WEEKS
     Route: 030

REACTIONS (50)
  - Hypoaesthesia [Recovering/Resolving]
  - Vertigo [Unknown]
  - Irritability [Unknown]
  - Stress [Unknown]
  - Diarrhoea [Unknown]
  - Swelling face [Recovering/Resolving]
  - Peripheral swelling [Recovering/Resolving]
  - Tongue disorder [Unknown]
  - Swelling [Unknown]
  - Insulin-like growth factor decreased [Recovering/Resolving]
  - Injection site paraesthesia [Unknown]
  - Fatigue [Unknown]
  - Pituitary tumour recurrent [Unknown]
  - Skin odour abnormal [Recovering/Resolving]
  - Back injury [Unknown]
  - Hirsutism [Unknown]
  - Eating disorder [Unknown]
  - Neck pain [Unknown]
  - Weight decreased [Unknown]
  - Osteoarthritis [Unknown]
  - Nausea [Unknown]
  - Neoplasm [Unknown]
  - Acne cystic [Unknown]
  - Limb discomfort [Unknown]
  - Nose deformity [Unknown]
  - Injection site mass [Unknown]
  - X-ray abnormal [Unknown]
  - Mass [Unknown]
  - Injection site swelling [Unknown]
  - Insulin-like growth factor increased [Not Recovered/Not Resolved]
  - Injection site pain [Unknown]
  - Muscular weakness [Unknown]
  - Dry skin [Unknown]
  - Hair growth abnormal [Unknown]
  - Uterine leiomyoma [Recovered/Resolved]
  - Bone disorder [Not Recovered/Not Resolved]
  - Pain [Unknown]
  - Increased appetite [Unknown]
  - Fat tissue increased [Unknown]
  - Serum ferritin decreased [Recovering/Resolving]
  - Blood growth hormone increased [Unknown]
  - Menorrhagia [Recovered/Resolved]
  - Menstruation irregular [Recovering/Resolving]
  - Faecal incontinence [Unknown]
  - Arthritis [Unknown]
  - Seborrhoea [Unknown]
  - Panic attack [Unknown]
  - Blood pressure diastolic increased [Unknown]
  - Weight increased [Unknown]
  - Headache [Unknown]

NARRATIVE: CASE EVENT DATE: 201206
